FAERS Safety Report 23189314 (Version 1)
Quarter: 2023Q4

REPORT INFORMATION
  Report Type: Spontaneous
  Country: US (occurrence: US)
  Receive Date: 20231116
  Receipt Date: 20231116
  Transmission Date: 20240109
  Serious: No
  Sender: FDA-Public Use
  Company Number: US-CHIESI-2022CHF05677

PATIENT
  Sex: Female

DRUGS (7)
  1. BETHKIS [Suspect]
     Active Substance: TOBRAMYCIN
     Indication: Chronic respiratory failure
     Dosage: 300 MILLIGRAM, BID
     Route: 055
     Dates: start: 20220312, end: 2022
  2. BETHKIS [Suspect]
     Active Substance: TOBRAMYCIN
     Indication: Hypoxia
  3. BETHKIS [Suspect]
     Active Substance: TOBRAMYCIN
     Indication: Hypercapnia
  4. BETHKIS [Suspect]
     Active Substance: TOBRAMYCIN
     Indication: Tracheostomy
  5. BETHKIS [Suspect]
     Active Substance: TOBRAMYCIN
     Indication: Pseudomonas infection
  6. BETHKIS [Suspect]
     Active Substance: TOBRAMYCIN
     Indication: Burkholderia mallei infection
  7. BETHKIS [Suspect]
     Active Substance: TOBRAMYCIN
     Indication: Off label use

REACTIONS (2)
  - Adverse event [Unknown]
  - Off label use [Recovered/Resolved]

NARRATIVE: CASE EVENT DATE: 20220101
